FAERS Safety Report 6437464-8 (Version None)
Quarter: 2009Q4

REPORT INFORMATION
  Report Type: 
  Country: None (occurrence: None)
  Receive Date: 20091112
  Receipt Date: 20091102
  Transmission Date: 20100525
  Serious: Yes (Hospitalization)
  Sender: FDA-Public Use
  Company Number: PHHY2009ES47557

PATIENT
  Age: 82 Year
  Sex: Male

DRUGS (1)
  1. EUCREAS [Suspect]
     Indication: DIABETES MELLITUS
     Dosage: UNK
     Route: 048
     Dates: start: 20091005, end: 20091007

REACTIONS (4)
  - CARDIAC FAILURE [None]
  - FEELING HOT [None]
  - TACHYCARDIA [None]
  - TREMOR [None]
